FAERS Safety Report 5839396-2 (Version None)
Quarter: 2008Q3

REPORT INFORMATION
  Report Type: 
  Country: None (occurrence: None)
  Receive Date: 20080806
  Receipt Date: 20080730
  Transmission Date: 20090109
  Serious: Yes (Other)
  Sender: FDA-Public Use
  Company Number: 2008JP001858

PATIENT
  Age: 87 Year
  Sex: Female
  Weight: 33 kg

DRUGS (1)
  1. VESICARE [Suspect]
     Indication: HYPERTONIC BLADDER
     Dosage: 5 MG, UID/QD, ORAL
     Route: 048
     Dates: start: 20070319, end: 20070820

REACTIONS (6)
  - CENTRAL NERVOUS SYSTEM LESION [None]
  - CEREBRAL ATROPHY [None]
  - COGNITIVE DISORDER [None]
  - CONDITION AGGRAVATED [None]
  - OROPHARYNGEAL PAIN [None]
  - UPPER RESPIRATORY TRACT INFLAMMATION [None]
